FAERS Safety Report 10871913 (Version 2)
Quarter: 2015Q1

REPORT INFORMATION
  Report Type: Report from Study
  Country: DE (occurrence: DE)
  Receive Date: 20150226
  Receipt Date: 20150227
  Transmission Date: 20150721
  Serious: Yes (Other)
  Sender: FDA-Public Use
  Company Number: DE-ABBVIE-15P-062-1348669-00

PATIENT
  Age: 73 Year
  Sex: Male

DRUGS (4)
  1. ENANTONE LP [Suspect]
     Active Substance: LEUPROLIDE ACETATE
     Indication: PROSTATE CANCER
     Route: 058
     Dates: start: 20120807, end: 20121102
  2. TRENANTONE [Suspect]
     Active Substance: LEUPROLIDE ACETATE
     Indication: PROSTATE CANCER
     Route: 058
     Dates: start: 20121228, end: 20140106
  3. ANTIANDROGENS [Concomitant]
     Active Substance: UNSPECIFIED INGREDIENT
     Indication: PRODUCT USED FOR UNKNOWN INDICATION
     Dates: start: 20130708
  4. UNSPECIFIED OSTEOPOROSIS PROPHYLAXIS MEDICATION [Concomitant]
     Indication: OSTEOPOROSIS PROPHYLAXIS
     Dates: start: 20131008

REACTIONS (7)
  - Blood alkaline phosphatase increased [Unknown]
  - Alanine aminotransferase increased [Unknown]
  - Metastatic pain [Unknown]
  - Gamma-glutamyltransferase increased [Unknown]
  - Metastases to bone [Unknown]
  - Blood creatinine increased [Unknown]
  - Aspartate aminotransferase increased [Unknown]

NARRATIVE: CASE EVENT DATE: 20131008
